FAERS Safety Report 13447965 (Version 3)
Quarter: 2017Q2

REPORT INFORMATION
  Report Type: Report from Study
  Country: None (occurrence: LB)
  Receive Date: 20170417
  Receipt Date: 20170521
  Transmission Date: 20170830
  Serious: Yes (Other)
  Sender: FDA-Public Use
  Company Number: LB-ABBVIE-17K-093-1943438-00

PATIENT
  Age: 65 Year
  Sex: Male
  Weight: 110 kg

DRUGS (2)
  1. ASACOL [Concomitant]
     Active Substance: MESALAMINE
     Indication: PRODUCT USED FOR UNKNOWN INDICATION
     Route: 048
  2. HUMIRA [Suspect]
     Active Substance: ADALIMUMAB
     Indication: CROHN^S DISEASE
     Route: 058
     Dates: start: 2012, end: 20170328

REACTIONS (2)
  - Autoimmune disorder [Unknown]
  - Blood disorder [Unknown]

NARRATIVE: CASE EVENT DATE: 201610
